FAERS Safety Report 10186587 (Version 2)
Quarter: 2014Q2

REPORT INFORMATION
  Report Type: Report from Study
  Country: US (occurrence: US)
  Receive Date: 20140521
  Receipt Date: 20140521
  Transmission Date: 20141212
  Serious: Yes (Hospitalization)
  Sender: FDA-Public Use
  Company Number: US-ONYX-2014-0923

PATIENT
  Age: 76 Year
  Sex: Female
  Weight: 98.2 kg

DRUGS (10)
  1. CARFILZOMIB [Suspect]
     Indication: PLASMA CELL MYELOMA
     Route: 042
     Dates: start: 20140130, end: 20140418
  2. POMALIDOMIDE [Concomitant]
     Indication: PLASMA CELL MYELOMA
     Route: 048
     Dates: start: 20140130, end: 20140423
  3. AMLODIPINE BESYLATE [Concomitant]
     Indication: HYPERTENSION
     Dates: start: 19890101
  4. ALLOPURINOL [Concomitant]
     Indication: HYPERURICAEMIA
     Dates: start: 20140102
  5. FLUOXETINE [Concomitant]
     Indication: DEPRESSION
     Dates: start: 19830101
  6. FUROSEMIDE [Concomitant]
     Indication: OEDEMA PERIPHERAL
     Dates: start: 20130501
  7. LISINOPRIL [Concomitant]
     Indication: HYPERTENSION
     Dates: start: 19800101
  8. OMEPRAZOLE [Concomitant]
     Indication: GASTROOESOPHAGEAL REFLUX DISEASE
     Dates: start: 20010101
  9. TENOFOVIR [Concomitant]
     Indication: HEPATITIS B
     Dates: start: 20131101
  10. ZOMETA [Concomitant]
     Indication: ROUTINE HEALTH MAINTENANCE
     Dates: start: 20140310

REACTIONS (1)
  - Arrhythmia [Recovered/Resolved]
